FAERS Safety Report 18517346 (Version 1)
Quarter: 2020Q4

REPORT INFORMATION
  Report Type: Spontaneous
  Country: US (occurrence: US)
  Receive Date: 20201118
  Receipt Date: 20201118
  Transmission Date: 20210114
  Serious: Yes (Death)
  Sender: FDA-Public Use
  Company Number: None

PATIENT
  Age: 52 Year
  Sex: Male

DRUGS (3)
  1. CLOPIDOGREL [Suspect]
     Active Substance: CLOPIDOGREL BISULFATE
  2. NAPROXEN. [Concomitant]
     Active Substance: NAPROXEN
  3. INDOMETHACIN. [Concomitant]
     Active Substance: INDOMETHACIN

REACTIONS (4)
  - Hydrocephalus [None]
  - Brain death [None]
  - Unresponsive to stimuli [None]
  - Blood pressure increased [None]

NARRATIVE: CASE EVENT DATE: 20200524
